FAERS Safety Report 17414428 (Version 3)
Quarter: 2020Q1

REPORT INFORMATION
  Report Type: Report from Study
  Country: DE (occurrence: DE)
  Receive Date: 20200213
  Receipt Date: 20200330
  Transmission Date: 20200409
  Serious: Yes (Other)
  Sender: FDA-Public Use
  Company Number: DE-BEH-2019110144

PATIENT
  Age: 69 Year
  Sex: Female
  Weight: 70 kg

DRUGS (9)
  1. FENISTIL [Concomitant]
     Active Substance: DIMETHINDENE
     Dosage: 4 MILLIGRAM
     Route: 042
     Dates: start: 20200116
  2. PRIVIGEN [Suspect]
     Active Substance: HUMAN IMMUNOGLOBULIN G
     Indication: IMMUNODEFICIENCY
     Dosage: 20 MILLIGRAM
     Route: 042
     Dates: start: 20191126, end: 20191126
  3. PRIVIGEN [Suspect]
     Active Substance: HUMAN IMMUNOGLOBULIN G
     Indication: HYPOGAMMAGLOBULINAEMIA
     Dosage: 20 GRAM, TOT
     Route: 042
     Dates: start: 20200116, end: 20200116
  4. RANITIC [Concomitant]
     Active Substance: RANITIDINE HYDROCHLORIDE
     Indication: ANTIALLERGIC THERAPY
     Dosage: 50 MILLIGRAM
     Route: 042
     Dates: start: 20191126
  5. DEXAMETHASONE. [Concomitant]
     Active Substance: DEXAMETHASONE
     Dosage: 8 MILLIGRAM
     Route: 042
     Dates: start: 20191126
  6. DEXAMETHASONE. [Concomitant]
     Active Substance: DEXAMETHASONE
     Dosage: 8 MILLIGRAM
     Route: 042
     Dates: start: 20200116
  7. RANITIC [Concomitant]
     Active Substance: RANITIDINE HYDROCHLORIDE
     Dosage: 50 MILLIGRAM
     Route: 042
     Dates: start: 20200116
  8. FENISTIL [Concomitant]
     Active Substance: DIMETHINDENE
     Indication: ANTIALLERGIC THERAPY
     Dosage: 4 MILLIGRAM
     Route: 042
     Dates: start: 20191126
  9. PRIVIGEN [Suspect]
     Active Substance: HUMAN IMMUNOGLOBULIN G
     Dosage: UNK
     Route: 042
     Dates: start: 20200116

REACTIONS (4)
  - Back pain [Recovered/Resolved]
  - Chills [Recovered/Resolved]
  - Anaphylactic reaction [Recovered/Resolved]
  - Back pain [Recovered/Resolved]

NARRATIVE: CASE EVENT DATE: 20191126
